FAERS Safety Report 9787289 (Version 3)
Quarter: 2018Q3

REPORT INFORMATION
  Report Type: Spontaneous
  Country: US (occurrence: US)
  Receive Date: 20131230
  Receipt Date: 20180917
  Transmission Date: 20181010
  Serious: No
  Sender: FDA-Public Use
  Company Number: US-009507513-1312USA004884

PATIENT
  Age: 86 Year
  Sex: Female

DRUGS (2)
  1. DULERA [Suspect]
     Active Substance: FORMOTEROL FUMARATE DIHYDRATE\MOMETASONE FUROATE
     Dosage: UNK
     Route: 055
  2. DULERA [Suspect]
     Active Substance: FORMOTEROL FUMARATE DIHYDRATE\MOMETASONE FUROATE
     Dosage: ONE PUFF TWICE A DAY
     Route: 055

REACTIONS (4)
  - Product container issue [Unknown]
  - Drug dose omission [Unknown]
  - Product container issue [Unknown]
  - No adverse event [Unknown]

NARRATIVE: CASE EVENT DATE: 201805
